FAERS Safety Report 16210225 (Version 2)
Quarter: 2019Q2

REPORT INFORMATION
  Report Type: Spontaneous
  Country: GB (occurrence: GB)
  Receive Date: 20190418
  Receipt Date: 20190626
  Transmission Date: 20190711
  Serious: Yes (Other)
  Sender: FDA-Public Use
  Company Number: GB-BIOGEN-2019BI00725666

PATIENT
  Sex: Female

DRUGS (1)
  1. PLEGRIDY [Suspect]
     Active Substance: PEGINTERFERON BETA-1A
     Indication: MULTIPLE SCLEROSIS
     Dosage: 125MCG / 0.5ML
     Route: 058
     Dates: start: 20180807

REACTIONS (2)
  - Multiple sclerosis relapse [Unknown]
  - Blindness unilateral [Recovered/Resolved]
